FAERS Safety Report 7715891-6 (Version None)
Quarter: 2011Q3

REPORT INFORMATION
  Report Type: 
  Country: None (occurrence: None)
  Receive Date: 20110829
  Receipt Date: 20110829
  Transmission Date: 20111222
  Serious: No
  Sender: FDA-Public Use
  Company Number: None

PATIENT
  Age: 43 Year
  Sex: Female
  Weight: 100.69 kg

DRUGS (1)
  1. ABILIFY [Suspect]
     Dosage: 10 MG
     Route: 048

REACTIONS (1)
  - DYSPHONIA [None]
